FAERS Safety Report 8708844 (Version 2)
Quarter: 2012Q4

REPORT INFORMATION
  Report Type: 
  Country: US (occurrence: US)
  Receive Date: 20120806
  Receipt Date: 20120913
  Transmission Date: 20130627
  Serious: Yes (Death, Hospitalization)
  Sender: FDA-Public Use
  Company Number: US-INCYTE CORPORATION-2012IN001407

PATIENT
  Age: 79 Year
  Sex: Male
  Weight: 74.38 kg

DRUGS (1)
  1. JAKAFI [Suspect]
     Indication: MYELOFIBROSIS
     Dosage: 10 mg, bid
     Route: 048
     Dates: start: 201201, end: 201207

REACTIONS (5)
  - Death [Fatal]
  - Liver function test abnormal [None]
  - Blood creatinine increased [None]
  - Platelet count decreased [None]
  - White blood cell count decreased [None]
